FAERS Safety Report 8006379-6 (Version None)
Quarter: 2011Q4

REPORT INFORMATION
  Report Type: 
  Country: None (occurrence: None)
  Receive Date: 20111226
  Receipt Date: 20111213
  Transmission Date: 20120403
  Serious: Yes (Other)
  Sender: FDA-Public Use
  Company Number: PHEH2011US03455

PATIENT
  Sex: Male
  Weight: 113.38 kg

DRUGS (14)
  1. CARVEDILOL [Concomitant]
     Dosage: 6.25 MG, UNK
  2. DIAZEPAM [Concomitant]
     Dosage: 5 MG, UNK
  3. FLONASE [Concomitant]
     Dosage: 0.05 %, UNK
  4. ASPIRIN [Concomitant]
     Dosage: 81 MG, UNK
  5. IMDUR [Concomitant]
     Dosage: 120 MG
  6. ISOSORB [Concomitant]
     Dosage: 20 MG, UNK
  7. RANEXA [Concomitant]
     Dosage: 500 MG, UNK
  8. TASIGNA [Suspect]
     Dosage: 150 MG, BID
  9. PLAVIX [Concomitant]
     Dosage: 75 MG, UNK
  10. TRAZODONE HCL [Concomitant]
     Dosage: 150 MG, UNK
  11. SPIRIVA [Concomitant]
  12. ENALAPRIL MALEATE [Concomitant]
     Dosage: 20 MG
  13. ENALAPRIL MALEATE [Concomitant]
     Dosage: 20 MG, UNK
  14. LIPITOR [Concomitant]

REACTIONS (10)
  - ANGINA PECTORIS [None]
  - DEVICE MALFUNCTION [None]
  - PHOTOSENSITIVITY REACTION [None]
  - ALOPECIA [None]
  - RED BLOOD CELL COUNT DECREASED [None]
  - MYALGIA [None]
  - TESTICULAR PAIN [None]
  - SUNBURN [None]
  - BONE PAIN [None]
  - BLOOD PRESSURE DECREASED [None]
